FAERS Safety Report 8865197 (Version 1)
Quarter: 2012Q4

REPORT INFORMATION
  Report Type: 
  Country: US (occurrence: US)
  Receive Date: 20121024
  Receipt Date: 20121024
  Transmission Date: 20130627
  Serious: No
  Sender: FDA-Public Use
  Company Number: US-AMGEN-USASP2012001651

PATIENT
  Sex: Male

DRUGS (7)
  1. ENBREL [Suspect]
     Indication: PRODUCT USED FOR UNKNOWN INDICATION
     Dosage: 50 mg, qwk
  2. METHOTREXATE [Concomitant]
     Dosage: 2.5 mg, UNK
  3. ZOFRAN                             /00955301/ [Concomitant]
     Dosage: 4 mg, UNK
  4. CRESTOR [Concomitant]
     Dosage: 20 mg, UNK
  5. VERAPAMIL [Concomitant]
     Dosage: 100 mg, UNK
  6. ACIPHEX [Concomitant]
     Dosage: 20 mg, UNK
  7. ASPIRIN [Concomitant]
     Dosage: 81 mg, UNK

REACTIONS (1)
  - Thirst [Unknown]
